FAERS Safety Report 5751183-2 (Version None)
Quarter: 2008Q2

REPORT INFORMATION
  Report Type: 
  Country: None (occurrence: None)
  Receive Date: 20080528
  Receipt Date: 20080410
  Transmission Date: 20081010
  Serious: Yes (Hospitalization)
  Sender: FDA-Public Use
  Company Number: PA-BOEHRINGER INGELHEIM GMBH, GERMANY-2008-BP-08185MX

PATIENT
  Sex: Male

DRUGS (1)
  1. SECOTEX CAPSULES 0.4MG [Suspect]
     Indication: NEPHROLITHIASIS
     Route: 048
     Dates: start: 20080306, end: 20080318

REACTIONS (2)
  - EJACULATION FAILURE [None]
  - JAUNDICE [None]
